FAERS Safety Report 16931387 (Version 1)
Quarter: 2019Q4

REPORT INFORMATION
  Report Type: Spontaneous
  Country: US (occurrence: US)
  Receive Date: 20190826
  Receipt Date: 20190826
  Transmission Date: 20200122
  Serious: Yes (Death)
  Sender: FDA-Public Use
  Company Number: None

PATIENT
  Age: 69 Year
  Sex: Female

DRUGS (1)
  1. SILDENAFIL 20MG [Suspect]
     Active Substance: SILDENAFIL
     Indication: INTERSTITIAL LUNG DISEASE
     Route: 048
     Dates: start: 20180501

REACTIONS (1)
  - Death [None]

NARRATIVE: CASE EVENT DATE: 20190623
